FAERS Safety Report 4443602-9 (Version None)
Quarter: 2004Q3

REPORT INFORMATION
  Report Type: 
  Country: None (occurrence: None)
  Receive Date: 20040908
  Receipt Date: 20040722
  Transmission Date: 20050211
  Serious: Yes (Hospitalization, Other)
  Sender: FDA-Public Use
  Company Number: PHBS2004CO09900

PATIENT
  Age: 62 Year
  Sex: Female

DRUGS (5)
  1. GLEEVEC [Suspect]
     Indication: CHRONIC MYELOID LEUKAEMIA
     Dosage: 400 MG/D
     Route: 048
  2. GLEEVEC [Suspect]
     Dosage: 800 MG/D
     Route: 048
  3. GLEEVEC [Suspect]
     Dosage: 600 MG/D
     Route: 048
  4. CYTARABINE [Concomitant]
     Dosage: 100 MG, UNK
  5. DOXORUBICIN HCL [Concomitant]

REACTIONS (8)
  - ASTHENIA [None]
  - AURA [None]
  - CEREBROVASCULAR SPASM [None]
  - CONVULSION [None]
  - DRUG INEFFECTIVE [None]
  - HEADACHE [None]
  - LOSS OF CONSCIOUSNESS [None]
  - THROMBOCYTHAEMIA [None]
